FAERS Safety Report 9002093 (Version 1)
Quarter: 2013Q1

REPORT INFORMATION
  Report Type: Spontaneous
  Country: US (occurrence: None)
  Receive Date: 20130102
  Receipt Date: 20130102
  Transmission Date: 20140127
  Serious: Yes (Hospitalization)
  Sender: FDA-Public Use
  Company Number: None

PATIENT
  Age: 82 Year
  Sex: Male
  Weight: 68.6 kg

DRUGS (2)
  1. ASPIRIN [Suspect]
     Indication: DEEP VEIN THROMBOSIS
     Dosage: MG  EVERY DAY PO
     Route: 048
     Dates: start: 20091209, end: 20121224
  2. WARFARIN [Suspect]
     Dosage: 2 MG  UD  PO
     Route: 048
     Dates: start: 20100505, end: 20121218

REACTIONS (1)
  - Lower gastrointestinal haemorrhage [None]
